FAERS Safety Report 8890962 (Version 2)
Quarter: 2013Q2

REPORT INFORMATION
  Report Type: Report from Study
  Country: US (occurrence: US)
  Receive Date: 20121107
  Receipt Date: 20130402
  Transmission Date: 20140414
  Serious: Yes (Hospitalization)
  Sender: FDA-Public Use
  Company Number: US-ROCHE-1153195

PATIENT
  Age: 84 Year
  Sex: Female
  Weight: 68.1 kg

DRUGS (4)
  1. XELODA [Suspect]
     Indication: COLORECTAL CANCER METASTATIC
     Route: 048
  2. XELODA [Suspect]
     Route: 048
     Dates: end: 20121217
  3. IMODIUM [Concomitant]
     Route: 065
  4. COMPAZINE [Concomitant]
     Route: 065

REACTIONS (7)
  - Cholelithiasis [Recovering/Resolving]
  - Rectal haemorrhage [Recovering/Resolving]
  - Anaemia [Not Recovered/Not Resolved]
  - Asthenia [Recovering/Resolving]
  - Abdominal pain upper [Not Recovered/Not Resolved]
  - Frequent bowel movements [Not Recovered/Not Resolved]
  - Decreased appetite [Not Recovered/Not Resolved]
